FAERS Safety Report 17939160 (Version 2)
Quarter: 2021Q4

REPORT INFORMATION
  Report Type: Spontaneous
  Country: DE (occurrence: DE)
  Receive Date: 20200624
  Receipt Date: 20211008
  Transmission Date: 20220304
  Serious: Yes (Hospitalization)
  Sender: FDA-Public Use
  Company Number: DE-ADRED-05091-01

PATIENT
  Age: 77 Year
  Sex: Female
  Weight: 50.2 kg

DRUGS (13)
  1. AMOXICILLIN\CLAVULANATE POTASSIUM [Suspect]
     Active Substance: AMOXICILLIN\CLAVULANATE POTASSIUM
     Dosage: 875 | 125 MG, TWICE DAILY SINCE 1002202020
     Route: 065
  2. GABAPENTIN [Suspect]
     Active Substance: GABAPENTIN
     Dosage: 300 MILLIGRAM DAILY; 300 MG, 0-0-1-0
     Route: 065
  3. MELPERONE [Suspect]
     Active Substance: MELPERONE
     Dosage: 2 DOSAGE FORMS DAILY; 50 MG, 0-0-0-2
     Route: 065
  4. TRAMADOL [Suspect]
     Active Substance: TRAMADOL
     Dosage: 400 MILLIGRAM DAILY; 100 MG, 1-1-1-1
     Route: 065
  5. ZOPICLONE [Suspect]
     Active Substance: ZOPICLONE
     Dosage: 1.5 DOSAGE FORMS DAILY; 7.5 MG, 0-0-0-1.5
     Route: 065
  6. AMITRIPTYLINE [Suspect]
     Active Substance: AMITRIPTYLINE
     Dosage: 90 MILLIGRAM DAILY; 90 MG, 0-0-1-0
     Route: 065
  7. BISOPROLOL [Concomitant]
     Active Substance: BISOPROLOL
     Dosage: 2.5 MILLIGRAM DAILY; 2.5 MG, 1-0-0-0
  8. METOCLOPRAMIDE [Concomitant]
     Active Substance: METOCLOPRAMIDE
     Dosage: 20 MILLIGRAM DAILY; 10 MG, 1-0-1-0
  9. PANTOPRAZOLE SODIUM [Concomitant]
     Active Substance: PANTOPRAZOLE SODIUM
     Dosage: 40 MILLIGRAM DAILY; 40 MG, 1-0-0-0
  10. METAMIZOL [Concomitant]
     Active Substance: METAMIZOLE SODIUM
     Dosage: 1500 MILLIGRAM DAILY; 500 MG, 1-1-1-0
  11. CHOLECALCIFEROL [Concomitant]
     Active Substance: CHOLECALCIFEROL
     Dosage: 1000 IU (INTERNATIONAL UNIT) DAILY; 1000 IE, 1-0-0-0
  12. TORSEMIDE [Concomitant]
     Active Substance: TORSEMIDE
     Dosage: 20 MILLIGRAM DAILY; 20 MG, 1-0-0-0
  13. PREDNISOLONE [Concomitant]
     Active Substance: PREDNISOLONE
     Dosage: 20 MILLIGRAM DAILY; 20 MG, 1-0-0-0

REACTIONS (4)
  - Somnolence [Unknown]
  - Hypotension [Unknown]
  - Peripheral circulatory failure [Unknown]
  - Hypothermia [Unknown]
